FAERS Safety Report 25461314 (Version 2)
Quarter: 2025Q2

REPORT INFORMATION
  Report Type: Spontaneous
  Country: US (occurrence: US)
  Receive Date: 20250620
  Receipt Date: 20250627
  Transmission Date: 20250716
  Serious: No
  Sender: CHATTEM
  Company Number: US-OPELLA-2025OHG018884

PATIENT

DRUGS (3)
  1. ALLEGRA ALLERGY 24 HOUR [Suspect]
     Active Substance: FEXOFENADINE HYDROCHLORIDE
     Indication: Headache
  2. ALLEGRA ALLERGY 24 HOUR [Suspect]
     Active Substance: FEXOFENADINE HYDROCHLORIDE
     Indication: Sneezing
  3. ALLEGRA ALLERGY 24 HOUR [Suspect]
     Active Substance: FEXOFENADINE HYDROCHLORIDE
     Indication: Rhinorrhoea

REACTIONS (2)
  - Therapeutic response shortened [Unknown]
  - No adverse event [Unknown]
